FAERS Safety Report 22635015 (Version 1)
Quarter: 2023Q2

REPORT INFORMATION
  Report Type: Spontaneous
  Country: US (occurrence: None)
  Receive Date: 20230620
  Receipt Date: 20230620
  Transmission Date: 20230721
  Serious: No
  Sender: FDA-Public Use
  Company Number: None

PATIENT
  Age: 52 Year
  Sex: Female

DRUGS (2)
  1. LASTACAFT [Suspect]
     Active Substance: ALCAFTADINE
     Indication: Multiple allergies
     Dates: start: 202304, end: 20230619
  2. LASTACAFT [Suspect]
     Active Substance: ALCAFTADINE
     Indication: Seasonal allergy

REACTIONS (9)
  - Eye swelling [None]
  - Eye pain [None]
  - Swelling of eyelid [None]
  - Erythema of eyelid [None]
  - Foreign body sensation in eyes [None]
  - Burning sensation [None]
  - Eye discharge [None]
  - Eyelid margin crusting [None]
  - Eye pain [None]
